FAERS Safety Report 8574157 (Version 2)
Quarter: 2013Q2

REPORT INFORMATION
  Report Type: Spontaneous
  Country: CA (occurrence: US)
  Receive Date: 20120522
  Receipt Date: 20130430
  Transmission Date: 20140414
  Serious: Yes (Other)
  Sender: FDA-Public Use
  Company Number: CHPA2012US010693

PATIENT
  Age: 68 Year
  Sex: Female

DRUGS (2)
  1. OTRIVIN COLD + ALLERGY MEASURED DOSE PUMP [Suspect]
     Indication: NASAL CONGESTION
     Dosage: ONCE PER NIGHT
     Route: 045
     Dates: start: 1992
  2. DRIXORAL [Suspect]
     Dosage: UNK, UNK
     Route: 065

REACTIONS (4)
  - Diabetes mellitus [Not Recovered/Not Resolved]
  - Nasal congestion [Not Recovered/Not Resolved]
  - Condition aggravated [Not Recovered/Not Resolved]
  - Incorrect drug administration duration [Unknown]
